FAERS Safety Report 15402237 (Version 1)
Quarter: 2018Q3

REPORT INFORMATION
  Report Type: Report from Study
  Country: None (occurrence: CL)
  Receive Date: 20180919
  Receipt Date: 20180919
  Transmission Date: 20181010
  Serious: Yes (Other)
  Sender: FDA-Public Use
  Company Number: CL-ABBVIE-18K-034-2485010-00

PATIENT
  Age: 61 Year
  Sex: Female

DRUGS (5)
  1. SICCAFLUID [Concomitant]
     Indication: DRY EYE
  2. AZULFIDINE [Concomitant]
     Active Substance: SULFASALAZINE
     Indication: PRODUCT USED FOR UNKNOWN INDICATION
  3. HUMIRA [Suspect]
     Active Substance: ADALIMUMAB
     Indication: RHEUMATOID ARTHRITIS
     Route: 058
     Dates: start: 20171122
  4. THEALOZ DUO [Concomitant]
     Indication: DRY EYE
  5. LEFLUNOMIDE. [Concomitant]
     Active Substance: LEFLUNOMIDE
     Indication: PRODUCT USED FOR UNKNOWN INDICATION

REACTIONS (8)
  - Nerve compression [Unknown]
  - Toothache [Unknown]
  - Dental cyst [Recovered/Resolved]
  - Paraesthesia [Not Recovered/Not Resolved]
  - Tooth extraction [Unknown]
  - Arthralgia [Unknown]
  - Endodontic procedure [Unknown]
  - Intervertebral disc protrusion [Unknown]

NARRATIVE: CASE EVENT DATE: 201808
